FAERS Safety Report 11148466 (Version 3)
Quarter: 2015Q2

REPORT INFORMATION
  Report Type: Spontaneous
  Country: JP (occurrence: JP)
  Receive Date: 20150529
  Receipt Date: 20150625
  Transmission Date: 20150821
  Serious: Yes (Hospitalization, Congenital Anomaly)
  Sender: FDA-Public Use
  Company Number: JP-ASTELLAS-2015JP010857AA

PATIENT
  Age: 0 Day
  Sex: Male
  Weight: 2 kg

DRUGS (13)
  1. GASTER [Suspect]
     Active Substance: FAMOTIDINE
     Indication: FOETAL EXPOSURE DURING PREGNANCY
     Route: 064
     Dates: start: 2012, end: 20130718
  2. BAYASPIRIN [Concomitant]
     Active Substance: ASPIRIN
     Indication: FOETAL EXPOSURE DURING PREGNANCY
     Route: 064
     Dates: start: 2012, end: 20130609
  3. LEXOTAN [Concomitant]
     Active Substance: BROMAZEPAM
     Indication: FOETAL EXPOSURE DURING PREGNANCY
     Route: 064
     Dates: start: 2012, end: 20130718
  4. FLOMOX                             /01418603/ [Concomitant]
     Indication: FOETAL EXPOSURE DURING PREGNANCY
     Route: 064
     Dates: start: 20130306, end: 20130312
  5. MEIACT [Concomitant]
     Active Substance: CEFDITOREN PIVOXIL
     Indication: FOETAL EXPOSURE DURING PREGNANCY
     Route: 064
     Dates: start: 20130417, end: 20130423
  6. FERROUS SULFATE [Concomitant]
     Active Substance: FERROUS SULFATE\FERROUS SULFATE, DRIED
     Indication: FOETAL EXPOSURE DURING PREGNANCY
     Route: 064
     Dates: start: 20130611, end: 20130612
  7. PREDNISOLONE. [Suspect]
     Active Substance: PREDNISOLONE
     Indication: FOETAL EXPOSURE DURING PREGNANCY
     Route: 064
     Dates: start: 2012, end: 20130718
  8. REFLEX                             /00021218/ [Concomitant]
     Indication: FOETAL EXPOSURE DURING PREGNANCY
     Route: 064
     Dates: start: 2012, end: 20130718
  9. EURODIN                            /00401202/ [Concomitant]
     Active Substance: DIHYDROERGOCRISTINE MESYLATE
     Indication: FOETAL EXPOSURE DURING PREGNANCY
     Route: 064
     Dates: start: 2012, end: 20130212
  10. BONALON [Concomitant]
     Active Substance: ALENDRONATE SODIUM
     Indication: FOETAL EXPOSURE DURING PREGNANCY
     Route: 064
     Dates: start: 2012, end: 20130212
  11. UTEMERIN [Concomitant]
     Active Substance: RITODRINE
     Indication: FOETAL EXPOSURE DURING PREGNANCY
     Route: 064
     Dates: start: 20130626, end: 20130716
  12. PROGRAF [Suspect]
     Active Substance: TACROLIMUS\TACROLIMUS ANHYDROUS
     Indication: FOETAL EXPOSURE DURING PREGNANCY
     Route: 064
     Dates: start: 2012, end: 20130718
  13. BREDININ [Concomitant]
     Active Substance: MIZORIBINE
     Indication: FOETAL EXPOSURE DURING PREGNANCY
     Route: 064
     Dates: start: 2012, end: 20121227

REACTIONS (1)
  - Low birth weight baby [Recovered/Resolved]

NARRATIVE: CASE EVENT DATE: 20130718
